FAERS Safety Report 12580462 (Version 1)
Quarter: 2016Q3

REPORT INFORMATION
  Report Type: Spontaneous
  Country: US (occurrence: US)
  Receive Date: 20160721
  Receipt Date: 20160721
  Transmission Date: 20161109
  Serious: No
  Sender: FDA-Public Use
  Company Number: US-SEPTODONT-201603318

PATIENT
  Sex: Male

DRUGS (1)
  1. LIDOCAINE OINTMENT USP, 5% (FLAVORED) [Suspect]
     Active Substance: LIDOCAINE
     Indication: LOCAL ANAESTHESIA
     Route: 061
     Dates: start: 20160402, end: 20160406

REACTIONS (2)
  - Off label use [Unknown]
  - Drug ineffective [Unknown]

NARRATIVE: CASE EVENT DATE: 20160402
